FAERS Safety Report 5217064-8 (Version None)
Quarter: 2007Q1

REPORT INFORMATION
  Report Type: 
  Country: None (occurrence: None)
  Receive Date: 20070119
  Receipt Date: 20070109
  Transmission Date: 20070707
  Serious: Yes (Other)
  Sender: FDA-Public Use
  Company Number: 2007SP000715

PATIENT
  Age: 54 Year
  Sex: Male

DRUGS (47)
  1. ALBUTEROL SULFATE [Suspect]
     Indication: PNEUMONIA
     Dosage: RESP
     Route: 055
  2. ACTRAPID (INSULIN HUMAN) [Suspect]
     Dosage: IV
     Route: 042
  3. SILVER SULPHADIAZINE [Suspect]
     Dosage: TOP
     Route: 061
  4. LACGTULOSE (LACTULOSE) [Suspect]
     Dosage: 10 ML;
  5. LANSOPRAZOLE [Suspect]
     Dosage: 30 MG;
  6. CALCIUM GLUCONATE [Suspect]
     Dosage: 10 ML;
  7. CEFTRIAXONE [Suspect]
     Dosage: 2 GM; IV
     Route: 042
  8. OMEPRAZOLE [Suspect]
     Dosage: 40 MG; IV
     Route: 042
  9. SODIUM CHLORIDE (SODIUM CHLORIDE) (0.9 PCT) [Suspect]
     Dosage: IV
     Route: 042
  10. FRAGMIN [Suspect]
     Dosage: 2500 IU;
  11. HYDROCORTISONE [Suspect]
     Dosage: 100 MG; ONCE;
  12. SANDO-K [Suspect]
     Dosage: 2 DF; TID;
  13. SIMVASTATIN [Suspect]
     Dosage: 40 MG; QD;
  14. TINZAPARIN (TINZAPARIN) [Suspect]
     Dosage: 3500 MCL;
  15. ALFENTANIL [Suspect]
  16. AQUASEPT (TRICLOSAN) [Suspect]
  17. BACTROBAN [Suspect]
  18. CALCIUM CHLORIDE (CALCIUM CHLORIDE ANHYDROUS) [Suspect]
  19. DOBUTAMINE (DOBUTAMINE) [Suspect]
  20. LORAZEPAM [Suspect]
  21. MAGNESIUM SULFATE [Suspect]
  22. NOREPINEPHRINE BITARTRATE [Suspect]
  23. ACETAMINOPHEN [Suspect]
  24. POTASSIUM CHLORIDE [Suspect]
  25. POTASSIUM PHOSPHATES [Suspect]
  26. PROPOFOL [Suspect]
  27. PHYTONADIONE [Suspect]
  28. AMOXICILLIN [Suspect]
     Dosage: 1 GM; TID; IV
     Route: 042
  29. ENOXAPARIN SODIUM [Suspect]
     Dosage: 20 MG; QD; SC
     Route: 058
  30. FLUCONAZOLE [Suspect]
     Dosage: 200 MG; IV
     Route: 042
  31. FUROSEMIDE [Suspect]
     Dosage: SEE IMAGE
  32. CHLORPHENIRAMINE MALEATE [Suspect]
     Dosage: 10 MG; QID; IV
     Route: 042
  33. SODIUM BICARBONATE IN PLASTIC CONTAINER [Suspect]
     Dosage: 100 MG; IV
     Route: 042
  34. THIAMINE HYDROCHLORIDE [Suspect]
     Dosage: 100 MG; QD; PO
     Route: 048
  35. ASPIRIN [Concomitant]
  36. ATROVENT [Concomitant]
  37. CIPROFLOXACIN /00697202/ [Concomitant]
  38. ERYTHROMYCIN [Concomitant]
  39. METOCLOPRAMIDE [Concomitant]
  40. MIDODRINE [Concomitant]
  41. PANTOPRAZOLE SODIUM [Concomitant]
  42. TAZOCIN [Concomitant]
  43. VANCOMYCIN [Concomitant]
  44. ZOPICLONE [Concomitant]
  45. AMOXICILLIN [Concomitant]
  46. AMOXICILLIN + CLAVULANATE POTASSIUM [Concomitant]
  47. CO-CODAMOL [Concomitant]

REACTIONS (1)
  - TOXIC EPIDERMAL NECROLYSIS [None]
